FAERS Safety Report 9964226 (Version 1)
Quarter: 2014Q1

REPORT INFORMATION
  Report Type: Report from Study
  Country: US (occurrence: US)
  Receive Date: 20140305
  Receipt Date: 20140305
  Transmission Date: 20141002
  Serious: Yes (Hospitalization)
  Sender: FDA-Public Use
  Company Number: US-BAXTER-2014BAX009991

PATIENT
  Age: 47 Year
  Sex: 0

DRUGS (3)
  1. CYTOXAN (CYCLOPHOSPHAMIDE FOR INJECTION, USP) 500 MG VIAL (LYOPHILIZE [Suspect]
     Indication: CHRONIC LYMPHOCYTIC LEUKAEMIA
     Dosage: DAY 1-3
     Route: 042
     Dates: start: 20110228, end: 20110526
  2. FLUDARA [Suspect]
     Indication: CHRONIC LYMPHOCYTIC LEUKAEMIA
     Dosage: DAY 1-3
     Route: 042
     Dates: start: 20110228, end: 20110526
  3. RITUXAN [Suspect]
     Indication: CHRONIC LYMPHOCYTIC LEUKAEMIA
     Dosage: DAY 1
     Route: 042
     Dates: start: 20110228, end: 20110526

REACTIONS (2)
  - Gastroenteritis [Unknown]
  - Haematochezia [Unknown]
